FAERS Safety Report 5741530-X (Version None)
Quarter: 2008Q2

REPORT INFORMATION
  Report Type: 
  Country: None (occurrence: None)
  Receive Date: 20080519
  Receipt Date: 20080315
  Transmission Date: 20081010
  Serious: No
  Sender: FDA-Public Use
  Company Number: US-BAYER-200817442NA

PATIENT
  Age: 44 Year
  Sex: Male
  Weight: 96 kg

DRUGS (2)
  1. ULTRAVIST 370 [Suspect]
     Indication: COMPUTERISED TOMOGRAM ABDOMEN
     Route: 042
     Dates: start: 20080314, end: 20080314
  2. NEXIUM [Concomitant]

REACTIONS (2)
  - PRURITUS [None]
  - URTICARIA [None]
